FAERS Safety Report 22016509 (Version 4)
Quarter: 2023Q2

REPORT INFORMATION
  Report Type: Spontaneous
  Country: US (occurrence: US)
  Receive Date: 20230221
  Receipt Date: 20230518
  Transmission Date: 20230722
  Serious: No
  Sender: FDA-Public Use
  Company Number: US-ABBVIE-4313957

PATIENT
  Age: 72 Year
  Sex: Male

DRUGS (5)
  1. LUPRON DEPOT [Suspect]
     Active Substance: LEUPROLIDE ACETATE
     Indication: Prostate cancer
     Route: 065
  2. ORGOVYX [Suspect]
     Active Substance: RELUGOLIX
     Indication: Prostate cancer
     Dosage: FORM STRENGTH: 120 MILLIGRAM
     Route: 048
     Dates: start: 20230121
  3. ORGOVYX [Suspect]
     Active Substance: RELUGOLIX
     Indication: Prostate cancer
     Dosage: FORM STRENGTH: 120 MILLIGRAM
     Route: 048
     Dates: start: 20230120, end: 20230120
  4. ORGOVYX [Suspect]
     Active Substance: RELUGOLIX
     Indication: Prostate cancer
     Dosage: FORM STRENGTH: 120 MILLIGRAM
     Route: 065
  5. ORGOVYX [Suspect]
     Active Substance: RELUGOLIX
     Indication: Prostate cancer
     Dosage: FORM STRENGTH: 120 MILLIGRAM
     Route: 065

REACTIONS (7)
  - Intestinal polyp [Unknown]
  - Hot flush [Recovered/Resolved]
  - Pain [Not Recovered/Not Resolved]
  - Blood glucose increased [Unknown]
  - Haemoglobin decreased [Unknown]
  - Blood iron decreased [Unknown]
  - Anaemia [Unknown]

NARRATIVE: CASE EVENT DATE: 20230127
